FAERS Safety Report 4561123-X (Version None)
Quarter: 2005Q1

REPORT INFORMATION
  Report Type: 
  Country: None (occurrence: None)
  Receive Date: 20050121
  Receipt Date: 20050117
  Transmission Date: 20050727
  Serious: Yes (Hospitalization)
  Sender: FDA-Public Use
  Company Number: 2005UW00780

PATIENT
  Age: 50 Year
  Sex: Male
  Weight: 78 kg

DRUGS (6)
  1. IRESSA [Suspect]
     Indication: NEOPLASM MALIGNANT
     Dosage: 1500 MG Q3WK PO
     Route: 048
     Dates: start: 20040927
  2. DOCETAXEL [Suspect]
     Indication: NEOPLASM MALIGNANT
     Dosage: 75 MG/M2 Q3WK IV
     Route: 042
     Dates: start: 20040929
  3. DILAUDID [Concomitant]
  4. SYNTHROID [Concomitant]
  5. OXYCONTIN [Concomitant]
  6. OXYCODONE ELIXIR [Concomitant]

REACTIONS (5)
  - ATELECTASIS [None]
  - LYMPHOPENIA [None]
  - PLEURAL EFFUSION [None]
  - PULMONARY EMBOLISM [None]
  - PYREXIA [None]
